FAERS Safety Report 9841048 (Version 3)
Quarter: 2014Q1

REPORT INFORMATION
  Report Type: Report from Study
  Country: DE (occurrence: DE)
  Receive Date: 20140124
  Receipt Date: 20140210
  Transmission Date: 20141002
  Serious: Yes (Hospitalization, Other)
  Sender: FDA-Public Use
  Company Number: DE-ASTELLAS-2014US000722

PATIENT
  Age: 65 Year
  Sex: Male

DRUGS (8)
  1. ERLOTINIB TABLET [Suspect]
     Indication: PANCREATIC CARCINOMA
     Dosage: 100 MG, UID/QD
     Route: 048
     Dates: start: 20131213, end: 20140125
  2. GEMCITABINE HYDROCHLORIDE [Suspect]
     Indication: PANCREATIC CARCINOMA
     Dosage: 1750 MG, WEEKLY
     Route: 042
     Dates: start: 20131213, end: 20140125
  3. PANTOZOL                           /01263204/ [Concomitant]
     Indication: PRODUCT USED FOR UNKNOWN INDICATION
     Dosage: 20 MG, UNKNOWN/D
     Route: 065
  4. NOVALGIN                           /06276704/ [Concomitant]
     Indication: PRODUCT USED FOR UNKNOWN INDICATION
     Dosage: 1500 DF, UNKNOWN/D
     Route: 065
  5. CREON [Concomitant]
     Indication: PRODUCT USED FOR UNKNOWN INDICATION
     Dosage: 7500 DF, UNKNOWN/D
     Route: 065
  6. ACTRAPID [Concomitant]
     Indication: PRODUCT USED FOR UNKNOWN INDICATION
     Dosage: 10 DF, UNKNOWN/D
     Route: 065
     Dates: start: 20140118
  7. PROTAPHANE [Concomitant]
     Indication: PRODUCT USED FOR UNKNOWN INDICATION
     Dosage: 10 DF, UNKNOWN/D
     Route: 065
  8. CLEXANE [Concomitant]
     Indication: PRODUCT USED FOR UNKNOWN INDICATION
     Dosage: 1.2 ML, UNKNOWN/D
     Route: 065

REACTIONS (2)
  - Metastases to lung [Unknown]
  - Cholangitis [Recovered/Resolved]
